FAERS Safety Report 21105139 (Version 1)
Quarter: 2022Q3

REPORT INFORMATION
  Report Type: Spontaneous
  Country: ES (occurrence: ES)
  Receive Date: 20220720
  Receipt Date: 20220720
  Transmission Date: 20221026
  Serious: Yes (Other)
  Sender: FDA-Public Use
  Company Number: ES-PFIZER INC-PV202200019993

PATIENT
  Age: 85 Year
  Sex: Female

DRUGS (1)
  1. LYRICA [Suspect]
     Active Substance: PREGABALIN
     Indication: Neuralgia
     Dosage: 600 MG, DAILY

REACTIONS (6)
  - Schwannoma [Recovering/Resolving]
  - Gait disturbance [Recovering/Resolving]
  - Joint range of motion decreased [Recovering/Resolving]
  - Nerve injury [Recovering/Resolving]
  - Off label use [Unknown]
  - Product use issue [Unknown]
